FAERS Safety Report 13977616 (Version 1)
Quarter: 2017Q3

REPORT INFORMATION
  Report Type: Spontaneous
  Country: ES (occurrence: ES)
  Receive Date: 20170915
  Receipt Date: 20170915
  Transmission Date: 20171128
  Serious: Yes (Hospitalization)
  Sender: FDA-Public Use
  Company Number: ES-PFIZER INC-2011SE36898

PATIENT
  Age: 50 Year
  Sex: Male

DRUGS (3)
  1. MEROPENEM. [Suspect]
     Active Substance: MEROPENEM
     Dosage: 2 G, EVERY 8 HOURS
     Route: 042
  2. VALPROATE [Interacting]
     Active Substance: VALPROIC ACID
     Dosage: UNK, (300 MG 12H)
     Route: 048
  3. VALPROATE [Interacting]
     Active Substance: VALPROIC ACID
     Dosage: UNK, (500 MG 8H INTRAVENOUS)
     Route: 042

REACTIONS (3)
  - Seizure [Recovered/Resolved]
  - Drug interaction [Recovered/Resolved]
  - Anticonvulsant drug level decreased [Recovered/Resolved]
